FAERS Safety Report 6317397-8 (Version None)
Quarter: 2009Q3

REPORT INFORMATION
  Report Type: 
  Country: None (occurrence: None)
  Receive Date: 20090821
  Receipt Date: 20090813
  Transmission Date: 20100115
  Serious: Yes (Hospitalization)
  Sender: FDA-Public Use
  Company Number: US-WYE-H10584809

PATIENT
  Age: 54 Year
  Sex: Female
  Weight: 50 kg

DRUGS (2)
  1. TEMSIROLIMUS [Suspect]
     Indication: MULTIPLE MYELOMA
     Dosage: 25 MG DAYS 1,8,15,22,29 EVERY 35 DAYS
     Dates: start: 20090706, end: 20090806
  2. BORTEZOMIB [Suspect]
     Indication: MULTIPLE MYELOMA
     Dosage: 1.6 MG/M^2 DAYS 1,8,15,22 EVERY 35 DAYS
     Dates: start: 20090706, end: 20090806

REACTIONS (1)
  - FEBRILE NEUTROPENIA [None]
